FAERS Safety Report 17406453 (Version 1)
Quarter: 2020Q1

REPORT INFORMATION
  Report Type: Spontaneous
  Country: US (occurrence: US)
  Receive Date: 20200211
  Receipt Date: 20200211
  Transmission Date: 20200409
  Serious: Yes (Other)
  Sender: FDA-Public Use
  Company Number: None

PATIENT
  Age: 67 Year
  Sex: Male
  Weight: 86.4 kg

DRUGS (1)
  1. PRIALT [Suspect]
     Active Substance: ZICONOTIDE ACETATE
     Indication: BACK PAIN
     Route: 037

REACTIONS (4)
  - Hallucination, tactile [None]
  - Loss of personal independence in daily activities [None]
  - Anxiety [None]
  - Formication [None]

NARRATIVE: CASE EVENT DATE: 20190107
